FAERS Safety Report 8435953-8 (Version None)
Quarter: 2012Q2

REPORT INFORMATION
  Report Type: 
  Country: None (occurrence: None)
  Receive Date: 20120614
  Receipt Date: 20120605
  Transmission Date: 20120825
  Serious: Yes (Other)
  Sender: FDA-Public Use
  Company Number: JP-JNJFOC-20120400532

PATIENT
  Sex: Male
  Weight: 65 kg

DRUGS (5)
  1. INVEGA [Suspect]
     Route: 048
     Dates: start: 20120119, end: 20120126
  2. ZYPREXA [Suspect]
     Indication: SCHIZOPHRENIA, PARANOID TYPE
     Route: 048
     Dates: end: 20111221
  3. INVEGA [Suspect]
     Route: 048
     Dates: start: 20111222, end: 20120118
  4. INVEGA [Suspect]
     Indication: SCHIZOPHRENIA, PARANOID TYPE
     Route: 048
     Dates: start: 20111208, end: 20111221
  5. ZYPREXA [Suspect]
     Route: 048
     Dates: start: 20111222, end: 20120104

REACTIONS (2)
  - EYELID PTOSIS [None]
  - TREMOR [None]
